FAERS Safety Report 12564978 (Version 1)
Quarter: 2016Q3

REPORT INFORMATION
  Report Type: Spontaneous
  Country: TR (occurrence: TR)
  Receive Date: 20160718
  Receipt Date: 20160718
  Transmission Date: 20161109
  Serious: Yes (Hospitalization, Other)
  Sender: FDA-Public Use
  Company Number: TR-ACCORD-042498

PATIENT
  Age: 17 Year
  Sex: Male
  Weight: 40 kg

DRUGS (3)
  1. TACROLIMUS. [Suspect]
     Active Substance: TACROLIMUS
     Indication: IMMUNOSUPPRESSION
     Dosage: 0.1 MG/KG; 4 MG/DAY
  2. PREDNISOLONE. [Concomitant]
     Active Substance: PREDNISOLONE
     Indication: IMMUNOSUPPRESSION
     Dosage: 0.5 MG/KG
  3. MYCOPHENOLIC ACID. [Concomitant]
     Active Substance: MYCOPHENOLIC ACID
     Indication: IMMUNOSUPPRESSION
     Dosage: 375 MG/DOSE

REACTIONS (4)
  - Diabetes mellitus [Recovering/Resolving]
  - Posterior reversible encephalopathy syndrome [Unknown]
  - Toxicity to various agents [Recovering/Resolving]
  - Diabetic ketoacidosis [Recovered/Resolved]
